FAERS Safety Report 22002264 (Version 2)
Quarter: 2023Q1

REPORT INFORMATION
  Report Type: Spontaneous
  Country: IT (occurrence: IT)
  Receive Date: 20230217
  Receipt Date: 20230306
  Transmission Date: 20230418
  Serious: Yes (Other)
  Sender: FDA-Public Use
  Company Number: None

PATIENT
  Age: 66 Year
  Sex: Female
  Weight: 53 kg

DRUGS (1)
  1. PRIVIGEN [Suspect]
     Active Substance: HUMAN IMMUNOGLOBULIN G
     Indication: Hypogammaglobulinaemia
     Dosage: 20 GRAM
     Route: 042
     Dates: start: 20230127, end: 20230127

REACTIONS (5)
  - Erythema [Recovered/Resolved]
  - Chest discomfort [Recovered/Resolved]
  - Muscle twitching [Recovered/Resolved]
  - Dyspnoea [Recovered/Resolved]
  - Oxygen saturation decreased [Recovered/Resolved]

NARRATIVE: CASE EVENT DATE: 20230127
